FAERS Safety Report 5352579-3 (Version None)
Quarter: 2007Q2

REPORT INFORMATION
  Report Type: 
  Country: None (occurrence: None)
  Receive Date: 20070611
  Receipt Date: 20070604
  Transmission Date: 20071010
  Serious: Yes (Life-Threatening, Other)
  Sender: FDA-Public Use
  Company Number: JP-MERCK-0704USA05515

PATIENT
  Age: 62 Year
  Sex: Female

DRUGS (13)
  1. PRIMAXIN [Suspect]
     Indication: MENINGITIS
     Route: 041
     Dates: start: 20070402, end: 20070410
  2. PRIMAXIN [Suspect]
     Route: 041
     Dates: start: 20070313, end: 20070319
  3. PASIL [Suspect]
     Indication: MENINGITIS
     Route: 042
     Dates: start: 20070313, end: 20070319
  4. MINOCYCLINE HCL [Suspect]
     Indication: MENINGITIS
     Route: 042
     Dates: start: 20070402, end: 20070410
  5. ZOVIRAX [Concomitant]
     Indication: MENINGITIS
     Route: 042
     Dates: start: 20070310, end: 20070317
  6. UNASYN (SULTAMICILLIN TOSYLATE) [Concomitant]
     Indication: MENINGITIS
     Route: 042
     Dates: start: 20070310, end: 20070313
  7. AMIKACINA [Concomitant]
     Indication: MENINGITIS
     Route: 042
     Dates: start: 20070310, end: 20070313
  8. CEFMETAZON [Concomitant]
     Indication: MENINGITIS
     Route: 042
     Dates: start: 20070320, end: 20070402
  9. TAMIFLU [Concomitant]
     Indication: INFLUENZA
     Route: 048
     Dates: start: 20070310, end: 20070314
  10. BIOFERMIN R [Concomitant]
     Indication: PROPHYLAXIS
     Route: 048
     Dates: start: 20070310
  11. OMEPRAL [Concomitant]
     Indication: PROPHYLAXIS
     Route: 048
     Dates: start: 20070317
  12. ALEVIATIN [Concomitant]
     Indication: EPILEPSY
     Route: 048
     Dates: start: 20070320, end: 20070415
  13. PHENOBARBITAL TAB [Concomitant]
     Indication: EPILEPSY
     Route: 048
     Dates: start: 20070320, end: 20070415

REACTIONS (1)
  - SICK SINUS SYNDROME [None]
